FAERS Safety Report 12556949 (Version 1)
Quarter: 2016Q3

REPORT INFORMATION
  Report Type: Spontaneous
  Country: DE (occurrence: DE)
  Receive Date: 20160714
  Receipt Date: 20160714
  Transmission Date: 20161109
  Serious: Yes (Other)
  Sender: FDA-Public Use
  Company Number: DE-COL_23310_2016

PATIENT
  Age: 74 Year
  Sex: Male
  Weight: 87 kg

DRUGS (1)
  1. MERIDOL MW 0.2% CHLORHEXDINE [Suspect]
     Active Substance: CHLORHEXIDINE GLUCONATE
     Indication: DENTAL DISORDER PROPHYLAXIS
     Dosage: NI/THREE TIMES A DAY/
     Route: 048

REACTIONS (2)
  - Anosmia [Not Recovered/Not Resolved]
  - Ageusia [Not Recovered/Not Resolved]

NARRATIVE: CASE EVENT DATE: 20150224
